FAERS Safety Report 24633896 (Version 1)
Quarter: 2024Q4

REPORT INFORMATION
  Report Type: Report from Study
  Country: US (occurrence: US)
  Receive Date: 20241118
  Receipt Date: 20241118
  Transmission Date: 20250115
  Serious: No
  Sender: SUNOVION
  Company Number: US-SUMITOMO PHARMA SWITZERLAND GMBH-2024SPA000759

PATIENT

DRUGS (4)
  1. ORGOVYX [Suspect]
     Active Substance: RELUGOLIX
     Indication: Prostate cancer
     Dosage: 120 MG, QD
     Route: 048
     Dates: start: 20240507
  2. DOCETAXEL [Concomitant]
     Active Substance: DOCETAXEL
     Indication: Chemotherapy
     Dosage: UNK UNK, Q3WEEKS CHEMO INFUSIONS
     Route: 065
  3. SOLIFENACIN [Concomitant]
     Active Substance: SOLIFENACIN
     Dosage: 40 MG DAILY
     Route: 065
  4. PREGABALIN [Concomitant]
     Active Substance: PREGABALIN
     Dosage: 75 MG DAILY
     Route: 065

REACTIONS (9)
  - Erectile dysfunction [Unknown]
  - Blood testosterone decreased [Unknown]
  - Prostatic specific antigen increased [Unknown]
  - Nausea [Unknown]
  - Rash macular [Unknown]
  - Mood swings [Unknown]
  - Sexual life impairment [Unknown]
  - Asthenia [Unknown]
  - Incorrect dose administered [Unknown]
